FAERS Safety Report 7659158-3 (Version None)
Quarter: 2011Q3

REPORT INFORMATION
  Report Type: 
  Country: None (occurrence: None)
  Receive Date: 20110805
  Receipt Date: 20110801
  Transmission Date: 20111222
  Serious: Yes (Other)
  Sender: FDA-Public Use
  Company Number: FR-GLAXOSMITHKLINE-B0736214A

PATIENT
  Sex: Male

DRUGS (13)
  1. VALACYCLOVIR HYDROCHLORIDE [Concomitant]
     Indication: DERMATITIS BULLOUS
     Route: 065
     Dates: start: 20110608, end: 20110614
  2. CELLCEPT [Concomitant]
  3. LESCOL [Concomitant]
  4. ENALAPRIL MALEATE [Concomitant]
  5. PREDNISONE [Concomitant]
  6. NEXIUM [Concomitant]
  7. ALLOPURINOL [Concomitant]
  8. IMOVANE [Concomitant]
  9. NEORAL [Concomitant]
  10. TENORMIN [Concomitant]
  11. OMACOR [Concomitant]
  12. ZOVIRAX [Suspect]
     Indication: PRODUCT USED FOR UNKNOWN INDICATION
     Dosage: 600MG TWICE PER DAY
     Route: 048
     Dates: start: 20110625
  13. AEROSOL [Concomitant]
     Indication: COUGH
     Dates: start: 20110615, end: 20110624

REACTIONS (3)
  - LEUKOPENIA [None]
  - INCORRECT DOSE ADMINISTERED [None]
  - MEDICATION ERROR [None]
